FAERS Safety Report 7509739-2 (Version None)
Quarter: 2011Q2

REPORT INFORMATION
  Report Type: 
  Country: None (occurrence: None)
  Receive Date: 20110527
  Receipt Date: 20110520
  Transmission Date: 20111010
  Serious: Yes (Hospitalization)
  Sender: FDA-Public Use
  Company Number: JP-B.I. PHARMACEUTICALS,INC./RIDGEFIELD-2011-BP-11494NB

PATIENT
  Age: 73 Year
  Sex: Female

DRUGS (8)
  1. ALLOPURINOL [Concomitant]
     Dosage: 100 MG
     Route: 048
  2. AMIODARONE HYDROCHLORIDE [Concomitant]
     Dosage: 100 MG
     Route: 048
  3. LASIX [Concomitant]
     Dosage: 40 MG
     Route: 048
  4. ASPIRIN [Concomitant]
     Indication: ATRIAL FIBRILLATION
     Dosage: 100 MG
     Route: 048
  5. WARFARIN SODIUM [Concomitant]
  6. PRADAXA [Suspect]
     Indication: ATRIAL FIBRILLATION
     Dosage: 220 MG
     Route: 048
     Dates: start: 20110416, end: 20110421
  7. CANDESARTAN CILEXETIL [Concomitant]
     Dosage: 8 MG
     Route: 048
  8. EPLERENONE [Concomitant]
     Dosage: 50 MG
     Route: 048

REACTIONS (1)
  - MALLORY-WEISS SYNDROME [None]
